FAERS Safety Report 7343022-3 (Version None)
Quarter: 2011Q1

REPORT INFORMATION
  Report Type: 
  Country: None (occurrence: None)
  Receive Date: 20110310
  Receipt Date: 20110307
  Transmission Date: 20110831
  Serious: Yes (Life-Threatening, Other)
  Sender: FDA-Public Use
  Company Number: PHHY2010US81224

PATIENT
  Sex: Female

DRUGS (8)
  1. BENAZEPRIL HYDROCHLORIDE [Concomitant]
     Dosage: 20 MG,
  2. RECLAST [Suspect]
  3. LEVOTHYROXINE [Concomitant]
  4. PRAVASTATIN [Concomitant]
     Dosage: 40 MG,
  5. CALCIUM [Concomitant]
  6. CODEINE [Concomitant]
  7. PREDNISONE TAB [Concomitant]
     Indication: PAIN
  8. PLAVIX [Concomitant]
     Dosage: 75 MG,

REACTIONS (11)
  - PAIN [None]
  - ARTHRITIS [None]
  - ABDOMINAL PAIN [None]
  - MYALGIA [None]
  - SPINAL DEFORMITY [None]
  - FATIGUE [None]
  - FEELING ABNORMAL [None]
  - HEAD DISCOMFORT [None]
  - ARTHRALGIA [None]
  - NAUSEA [None]
  - BLOOD PRESSURE INCREASED [None]
